FAERS Safety Report 9311113 (Version 2)
Quarter: 2013Q2

REPORT INFORMATION
  Report Type: Spontaneous
  Country: US (occurrence: US)
  Receive Date: 20130528
  Receipt Date: 20130617
  Transmission Date: 20140414
  Serious: No
  Sender: FDA-Public Use
  Company Number: US-PFIZER INC-2013158978

PATIENT
  Sex: Female

DRUGS (1)
  1. PREMARIN [Suspect]
     Dosage: UNK
     Dates: start: 1987

REACTIONS (1)
  - Feeling hot [Unknown]
